FAERS Safety Report 9407960 (Version 2)
Quarter: 2013Q3

REPORT INFORMATION
  Report Type: Spontaneous
  Country: US (occurrence: None)
  Receive Date: 20130405
  Receipt Date: 20130815
  Transmission Date: 20140515
  Serious: Yes (Hospitalization, Other)
  Sender: FDA-Public Use
  Company Number: ADR-2012-01695

PATIENT
  Sex: Male

DRUGS (3)
  1. BACLOFEN INTRATHECAL [Suspect]
     Indication: MUSCLE SPASTICITY
  2. BACLOFEN INTRATHECAL [Suspect]
     Indication: CEREBRAL PALSY
  3. UNSPECIFIED INGREDIENTS [Suspect]

REACTIONS (11)
  - Device occlusion [None]
  - Tremor [None]
  - Decreased appetite [None]
  - Irritability [None]
  - Decreased appetite [None]
  - Tremor [None]
  - Insomnia [None]
  - Discomfort [None]
  - Restlessness [None]
  - Unevaluable event [None]
  - Drug withdrawal syndrome [None]
